FAERS Safety Report 7727441-9 (Version None)
Quarter: 2011Q3

REPORT INFORMATION
  Report Type: 
  Country: None (occurrence: None)
  Receive Date: 20110902
  Receipt Date: 20110825
  Transmission Date: 20111222
  Serious: Yes (Other)
  Sender: FDA-Public Use
  Company Number: US-NAPPMUNDI-USA-2010-0050328

PATIENT
  Sex: Male

DRUGS (3)
  1. MORPHINE [Concomitant]
     Indication: PAIN
     Route: 042
  2. OXYCONTIN [Suspect]
     Indication: PAIN
     Dosage: 60 MG, UNK
  3. OXYCONTIN [Suspect]
     Dosage: 300 MG, UNK

REACTIONS (5)
  - SPINAL LAMINECTOMY [None]
  - DRUG DEPENDENCE [None]
  - INADEQUATE ANALGESIA [None]
  - COLD SWEAT [None]
  - PAIN [None]
